FAERS Safety Report 4518966-8 (Version None)
Quarter: 2004Q4

REPORT INFORMATION
  Report Type: 
  Country: None (occurrence: None)
  Receive Date: 20041203
  Receipt Date: 20041203
  Transmission Date: 20050328
  Serious: Yes (Death, Hospitalization)
  Sender: FDA-Public Use
  Company Number: None

PATIENT
  Age: 48 Year
  Sex: Female
  Weight: 102.3 kg

DRUGS (7)
  1. CYTOXAN [Suspect]
     Indication: CHEMOTHERAPY
     Dosage: 4400MG  QD INTRAVENOUS
     Route: 042
     Dates: start: 20040829, end: 20040830
  2. CYTOXAN [Suspect]
     Indication: STEM CELL TRANSPLANT
     Dosage: 4400MG  QD INTRAVENOUS
     Route: 042
     Dates: start: 20040829, end: 20040830
  3. BUSULFAN [Suspect]
     Indication: CHRONIC MYELOID LEUKAEMIA
     Dosage: 74MG  QD INTRAVENOUS
     Route: 042
     Dates: start: 20040825, end: 20040828
  4. MORPHINE [Concomitant]
  5. BACITRACIN [Concomitant]
  6. PHENYTOIN [Concomitant]
  7. LORAZEPAM [Concomitant]

REACTIONS (7)
  - COMPLICATIONS OF TRANSPLANT SURGERY [None]
  - CONVULSION [None]
  - GENERAL PHYSICAL HEALTH DETERIORATION [None]
  - GENERALISED OEDEMA [None]
  - PAIN [None]
  - PLEURAL EFFUSION [None]
  - SINUS TACHYCARDIA [None]
